FAERS Safety Report 15985770 (Version 1)
Quarter: 2019Q1

REPORT INFORMATION
  Report Type: Report from Study
  Country: US (occurrence: US)
  Receive Date: 20190220
  Receipt Date: 20190220
  Transmission Date: 20190418
  Serious: Yes (Hospitalization, Other)
  Sender: FDA-Public Use
  Company Number: US-JAZZ-2019-US-000190

PATIENT
  Sex: Female

DRUGS (2)
  1. FAZACLO [Suspect]
     Active Substance: CLOZAPINE
     Indication: PRODUCT USED FOR UNKNOWN INDICATION
     Dosage: 200 MG, FIRST DOSE (MORNING)
  2. FAZACLO [Suspect]
     Active Substance: CLOZAPINE
     Dosage: 300 MG, SECOND DOSE (EVENING)
     Route: 048

REACTIONS (2)
  - Mental status changes [Unknown]
  - Small intestinal obstruction [Unknown]
